FAERS Safety Report 6680085-2 (Version None)
Quarter: 2010Q2

REPORT INFORMATION
  Report Type: 
  Country: None (occurrence: None)
  Receive Date: 20100413
  Receipt Date: 20100401
  Transmission Date: 20101027
  Serious: Yes (Other)
  Sender: FDA-Public Use
  Company Number: DE-CELGENEUS-062-50794-10030642

PATIENT
  Age: 60 Year
  Sex: Female
  Weight: 55 kg

DRUGS (9)
  1. VIDAZA [Suspect]
     Route: 058
     Dates: start: 20091116
  2. EPOGEN [Suspect]
     Route: 051
  3. EPOGEN [Suspect]
     Indication: THROMBOCYTOPENIA
  4. EPROSARTAN [Concomitant]
     Indication: DRUG USE FOR UNKNOWN INDICATION
     Route: 065
  5. LEVOTHYROXINE SODIUM [Concomitant]
     Indication: DRUG USE FOR UNKNOWN INDICATION
     Route: 065
  6. BISOPROLOL [Concomitant]
     Indication: DRUG USE FOR UNKNOWN INDICATION
     Route: 065
  7. RED BLOOD CELLS [Concomitant]
     Route: 051
  8. BLOOD CELLS, PACKED HUMAN [Concomitant]
     Indication: THROMBOCYTOPENIA
     Route: 051
  9. BLOOD CELLS, PACKED HUMAN [Concomitant]

REACTIONS (2)
  - RETINAL HAEMORRHAGE [None]
  - RETINAL VEIN THROMBOSIS [None]
